FAERS Safety Report 23281493 (Version 5)
Quarter: 2024Q4

REPORT INFORMATION
  Report Type: Report from Study
  Country: CA (occurrence: CA)
  Receive Date: 20231211
  Receipt Date: 20241212
  Transmission Date: 20250115
  Serious: Yes (Hospitalization, Other)
  Sender: ROCHE
  Company Number: CA-002147023-NVSC2023CA242228

PATIENT
  Age: 35 Year
  Sex: Female

DRUGS (27)
  1. XOLAIR [Suspect]
     Active Substance: OMALIZUMAB
     Indication: Chronic spontaneous urticaria
     Dosage: 450 MG (EVERY 4 WEEKS)
     Route: 050
     Dates: start: 20201023
  2. XOLAIR [Suspect]
     Active Substance: OMALIZUMAB
     Indication: Asthma
     Route: 050
  3. XOLAIR [Suspect]
     Active Substance: OMALIZUMAB
     Route: 050
  4. XOLAIR [Suspect]
     Active Substance: OMALIZUMAB
     Route: 050
  5. XOLAIR [Suspect]
     Active Substance: OMALIZUMAB
     Route: 050
     Dates: start: 202307
  6. XOLAIR [Suspect]
     Active Substance: OMALIZUMAB
     Route: 050
     Dates: start: 202311
  7. XOLAIR [Suspect]
     Active Substance: OMALIZUMAB
     Route: 050
     Dates: start: 202401
  8. XOLAIR [Suspect]
     Active Substance: OMALIZUMAB
     Route: 065
     Dates: start: 202011
  9. XOLAIR [Suspect]
     Active Substance: OMALIZUMAB
     Route: 065
     Dates: start: 202101
  10. ZANTAC [Concomitant]
     Active Substance: RANITIDINE HYDROCHLORIDE
     Indication: Product used for unknown indication
     Dosage: UNK
     Route: 065
  11. PREDNISONE [Concomitant]
     Active Substance: PREDNISONE
     Indication: Product used for unknown indication
     Dosage: UNK
     Route: 065
     Dates: start: 202004
  12. PREDNISONE [Concomitant]
     Active Substance: PREDNISONE
     Dosage: 5 MG, QD
     Route: 065
  13. PREDNISONE [Concomitant]
     Active Substance: PREDNISONE
     Dosage: 30 MG, QD
     Route: 065
  14. PREDNISONE [Concomitant]
     Active Substance: PREDNISONE
     Dosage: UNK, QD
     Route: 065
  15. PREDNISONE [Concomitant]
     Active Substance: PREDNISONE
     Dosage: UNK (HIGH DOSE)
     Route: 065
     Dates: start: 202312, end: 2024
  16. CETIRIZINE [Concomitant]
     Active Substance: CETIRIZINE HYDROCHLORIDE
     Indication: Product used for unknown indication
     Dosage: UNK, BID
     Route: 065
  17. RUPATADINE FUMARATE [Concomitant]
     Active Substance: RUPATADINE FUMARATE
     Indication: Product used for unknown indication
     Dosage: UNK, BID
     Route: 065
  18. HYDROXYZINE [Concomitant]
     Active Substance: HYDROXYZINE HYDROCHLORIDE
     Indication: Product used for unknown indication
     Dosage: UNK, TID
     Route: 065
  19. METHOTREXATE [Concomitant]
     Active Substance: METHOTREXATE
     Indication: Product used for unknown indication
     Dosage: UNK
     Route: 065
  20. SPIRIVA [Concomitant]
     Active Substance: TIOTROPIUM BROMIDE MONOHYDRATE
     Indication: Product used for unknown indication
     Dosage: 2 PUFFS, QD
     Route: 065
  21. RANITIDINE [Concomitant]
     Active Substance: RANITIDINE
     Indication: Hypersensitivity
     Dosage: 150 MG, BID
     Route: 065
  22. MONTELUKAST [Concomitant]
     Active Substance: MONTELUKAST
     Indication: Product used for unknown indication
     Dosage: 10 MG, QD
     Route: 065
  23. Reactine [Concomitant]
     Indication: Hypersensitivity
     Dosage: 20 MG, BID
     Route: 065
  24. SAXENDA [Concomitant]
     Active Substance: LIRAGLUTIDE
     Indication: Product used for unknown indication
     Dosage: 3 MG, QD
     Route: 065
  25. DUPIXENT [Concomitant]
     Active Substance: DUPILUMAB
     Indication: Product used for unknown indication
     Dosage: 300 MG, Q2W
     Route: 065
  26. SYMBICORT [Concomitant]
     Active Substance: BUDESONIDE\FORMOTEROL FUMARATE DIHYDRATE
     Indication: Product used for unknown indication
     Dosage: 2 PUFFS, BID
     Route: 065
  27. RESCUE [Concomitant]
     Indication: Product used for unknown indication
     Dosage: UNK (2-3 TIMES A DAY)
     Route: 065

REACTIONS (16)
  - Dyspnoea [Not Recovered/Not Resolved]
  - Anaphylactic reaction [Unknown]
  - Dermatitis atopic [Unknown]
  - Poor quality sleep [Unknown]
  - Pulmonary function test abnormal [Unknown]
  - Productive cough [Unknown]
  - Wheezing [Unknown]
  - Chest discomfort [Unknown]
  - Weight decreased [Unknown]
  - Oedema [Unknown]
  - Forced expiratory volume decreased [Recovering/Resolving]
  - Obstructive airways disorder [Unknown]
  - Dyspnoea exertional [Unknown]
  - Asthma [Unknown]
  - Urticaria [Unknown]
  - Off label use [Unknown]

NARRATIVE: CASE EVENT DATE: 20201117
